FAERS Safety Report 7354214-1 (Version None)
Quarter: 2011Q1

REPORT INFORMATION
  Report Type: 
  Country: None (occurrence: None)
  Receive Date: 20110316
  Receipt Date: 20110309
  Transmission Date: 20110831
  Serious: No
  Sender: FDA-Public Use
  Company Number: US-BIOGENIDEC-2011BI001757

PATIENT
  Sex: Female

DRUGS (1)
  1. TYSABRI [Suspect]
     Indication: MULTIPLE SCLEROSIS
     Route: 042
     Dates: start: 20080317, end: 20100925

REACTIONS (9)
  - WEIGHT INCREASED [None]
  - DECREASED APPETITE [None]
  - DYSPNOEA [None]
  - COUGH [None]
  - GENERAL SYMPTOM [None]
  - INSOMNIA [None]
  - INFLUENZA [None]
  - CHEST DISCOMFORT [None]
  - DIARRHOEA [None]
